FAERS Safety Report 7182406-3 (Version None)
Quarter: 2010Q4

REPORT INFORMATION
  Report Type: 
  Country: None (occurrence: None)
  Receive Date: 20101221
  Receipt Date: 20100512
  Transmission Date: 20110411
  Serious: No
  Sender: FDA-Public Use
  Company Number: US-AMGEN-KDL412070

PATIENT

DRUGS (7)
  1. ENBREL [Suspect]
     Indication: PRODUCT USED FOR UNKNOWN INDICATION
     Dosage: 25 MG, 2 TIMES/WK
     Route: 058
  2. METHOTREXATE [Concomitant]
     Dosage: 2.5 MG, UNK
  3. ATORVASTATIN CALCIUM [Concomitant]
     Dosage: 10 MG, UNK
  4. LISINOPRIL [Concomitant]
     Dosage: 2.5 MG, UNK
  5. HYDROCHLOROTHIAZIDE [Concomitant]
     Dosage: 25 MG, UNK
  6. MULTI-VITAMINS [Concomitant]
     Dosage: UNK UNK, UNK
  7. FOLINIC ACID [Concomitant]
     Dosage: 200 MG, UNK

REACTIONS (3)
  - BLOOD URINE PRESENT [None]
  - INJECTION SITE HAEMATOMA [None]
  - INJECTION SITE PRURITUS [None]
